FAERS Safety Report 5535220-6 (Version None)
Quarter: 2007Q4

REPORT INFORMATION
  Report Type: 
  Country: None (occurrence: None)
  Receive Date: 20071206
  Receipt Date: 20071130
  Transmission Date: 20080405
  Serious: Yes (Hospitalization)
  Sender: FDA-Public Use
  Company Number: FR-WYE-G00706507

PATIENT
  Sex: Male
  Weight: 20 kg

DRUGS (2)
  1. ADVIL [Suspect]
     Indication: PYREXIA
     Route: 048
     Dates: start: 20070601, end: 20070601
  2. ADVIL [Suspect]
     Indication: PHARYNGOLARYNGEAL PAIN

REACTIONS (6)
  - HYPERTHERMIA [None]
  - LARYNGEAL OEDEMA [None]
  - LYMPHADENOPATHY [None]
  - NECK PAIN [None]
  - PURPURA [None]
  - RETROPHARYNGEAL ABSCESS [None]
